FAERS Safety Report 5578682-0 (Version None)
Quarter: 2007Q4

REPORT INFORMATION
  Report Type: 
  Country: None (occurrence: None)
  Receive Date: 20071227
  Receipt Date: 20071227
  Transmission Date: 20080405
  Serious: Yes (Life-Threatening, Hospitalization)
  Sender: FDA-Public Use
  Company Number: None

PATIENT
  Sex: Female
  Weight: 61.2356 kg

DRUGS (1)
  1. ZANAFLEX [Suspect]
     Indication: MUSCLE SPASMS
     Dosage: 1-3 BEDTIME ORAL
     Route: 048
     Dates: start: 20070915

REACTIONS (3)
  - LOSS OF CONSCIOUSNESS [None]
  - RESPIRATORY ARREST [None]
  - SKIN DISCOLOURATION [None]
